FAERS Safety Report 7542696-1 (Version None)
Quarter: 2011Q2

REPORT INFORMATION
  Report Type: 
  Country: None (occurrence: None)
  Receive Date: 20110613
  Receipt Date: 20110606
  Transmission Date: 20111010
  Serious: Yes (Other)
  Sender: FDA-Public Use
  Company Number: GB-JNJFOC-20110600727

PATIENT
  Sex: Female
  Weight: 65.5 kg

DRUGS (4)
  1. NICOTINE [Suspect]
     Route: 048
     Dates: start: 20110501
  2. SCOPOLAMINE [Concomitant]
     Indication: IRRITABLE BOWEL SYNDROME
  3. NICOTINE [Suspect]
     Indication: SMOKING CESSATION THERAPY
     Dosage: SIX TO TEN SPRAYS DAILY
     Route: 048
     Dates: start: 20110503, end: 20110511
  4. HYOSCINE [Concomitant]
     Indication: IRRITABLE BOWEL SYNDROME
     Route: 048
     Dates: start: 20110414, end: 20110421

REACTIONS (3)
  - HEADACHE [None]
  - EPISTAXIS [None]
  - HYPOTENSION [None]
